FAERS Safety Report 23564983 (Version 1)
Quarter: 2024Q1

REPORT INFORMATION
  Report Type: Spontaneous
  Country: US (occurrence: US)
  Receive Date: 20240226
  Receipt Date: 20240226
  Transmission Date: 20240410
  Serious: Yes (Other)
  Sender: FDA-Public Use
  Company Number: US-AMGEN-USASP2024037018

PATIENT
  Age: 70 Year
  Sex: Female

DRUGS (1)
  1. PROLIA [Suspect]
     Active Substance: DENOSUMAB
     Indication: Osteoporosis
     Dosage: 60 MILLIGRAM, Q6MO
     Route: 058

REACTIONS (4)
  - Femur fracture [Recovering/Resolving]
  - Fall [Unknown]
  - Impaired healing [Not Recovered/Not Resolved]
  - Wound [Recovering/Resolving]

NARRATIVE: CASE EVENT DATE: 20230101
